FAERS Safety Report 21411458 (Version 1)
Quarter: 2022Q4

REPORT INFORMATION
  Report Type: Spontaneous
  Country: US (occurrence: US)
  Receive Date: 20221005
  Receipt Date: 20221005
  Transmission Date: 20230112
  Serious: Yes (Other)
  Sender: FDA-Public Use
  Company Number: US-PFIZER INC-202201201551

PATIENT
  Age: 71 Year
  Sex: Female

DRUGS (1)
  1. INLYTA [Suspect]
     Active Substance: AXITINIB
     Dosage: EVERY 12HOURS ON DAYS 1 THROUGH 28 IN 28 DAY CYCLE
     Dates: start: 20220819

REACTIONS (4)
  - Dyspnoea [Unknown]
  - Dizziness [Unknown]
  - Balance disorder [Unknown]
  - Constipation [Unknown]

NARRATIVE: CASE EVENT DATE: 20220101
